FAERS Safety Report 12920218 (Version 1)
Quarter: 2016Q4

REPORT INFORMATION
  Report Type: Spontaneous
  Country: US (occurrence: US)
  Receive Date: 20161105
  Receipt Date: 20161105
  Transmission Date: 20170207
  Serious: No
  Sender: FDA-Public Use
  Company Number: None

PATIENT
  Age: 59 Year
  Sex: Female
  Weight: 58.5 kg

DRUGS (5)
  1. RIZATRIPTAN. [Suspect]
     Active Substance: RIZATRIPTAN
     Indication: MIGRAINE
     Dosage: ?          QUANTITY:18 TABLET(S);?
     Route: 048
     Dates: start: 20160815, end: 20161101
  2. CLIMARA [Concomitant]
     Active Substance: ESTRADIOL
  3. VITAMIN D [Concomitant]
     Active Substance: CHOLECALCIFEROL
  4. RANITIDINE. [Concomitant]
     Active Substance: RANITIDINE
  5. CLARINEX [Concomitant]
     Active Substance: DESLORATADINE

REACTIONS (2)
  - Product packaging issue [None]
  - Dyspepsia [None]

NARRATIVE: CASE EVENT DATE: 20160815
